FAERS Safety Report 6998950-5 (Version None)
Quarter: 2010Q3

REPORT INFORMATION
  Report Type: 
  Country: None (occurrence: None)
  Receive Date: 20100920
  Receipt Date: 20100311
  Transmission Date: 20110219
  Serious: Yes (Other)
  Sender: FDA-Public Use
  Company Number: US-ASTRAZENECA-2008UW09162

PATIENT
  Age: 15 Year
  Sex: Male
  Weight: 79.4 kg

DRUGS (19)
  1. SEROQUEL [Suspect]
     Indication: ATTENTION DEFICIT/HYPERACTIVITY DISORDER
     Dosage: 25MG, 100MG
     Route: 048
     Dates: start: 20021011, end: 20021218
  2. SEROQUEL [Suspect]
     Indication: OPPOSITIONAL DEFIANT DISORDER
     Dosage: 25MG, 100MG
     Route: 048
     Dates: start: 20021011, end: 20021218
  3. SEROQUEL [Suspect]
     Indication: SCHIZOPHRENIA
     Dosage: 25MG, 100MG
     Route: 048
     Dates: start: 20021011, end: 20021218
  4. SEROQUEL [Suspect]
     Dosage: 25MG, 100MG, 200MG
     Route: 048
     Dates: start: 20030109, end: 20030506
  5. SEROQUEL [Suspect]
     Dosage: 25MG, 100MG, 200MG
     Route: 048
     Dates: start: 20030109, end: 20030506
  6. SEROQUEL [Suspect]
     Dosage: 25MG, 100MG, 200MG
     Route: 048
     Dates: start: 20030109, end: 20030506
  7. SEROQUEL [Suspect]
     Dosage: 25MG, 100MG, 200MG
     Route: 048
     Dates: start: 20031208, end: 20040820
  8. SEROQUEL [Suspect]
     Dosage: 25MG, 100MG, 200MG
     Route: 048
     Dates: start: 20031208, end: 20040820
  9. SEROQUEL [Suspect]
     Dosage: 25MG, 100MG, 200MG
     Route: 048
     Dates: start: 20031208, end: 20040820
  10. SEROQUEL [Suspect]
     Route: 048
     Dates: start: 20060919, end: 20070813
  11. SEROQUEL [Suspect]
     Route: 048
     Dates: start: 20060919, end: 20070813
  12. SEROQUEL [Suspect]
     Route: 048
     Dates: start: 20060919, end: 20070813
  13. ZYPREXA [Concomitant]
     Dosage: 2.5 MG, 5 MG, 10 MG
  14. ADDERALL 10 [Concomitant]
  15. ABILIFY [Concomitant]
     Dates: start: 20040612
  16. GEODON [Concomitant]
     Dosage: 20 MG, 40 MG, 60 MG, 80 MG
     Dates: start: 20000101
  17. RISPERDAL [Concomitant]
     Dates: start: 20050301, end: 20050901
  18. TOPAMAX [Concomitant]
     Dates: start: 20070827
  19. CLONIDINE [Concomitant]
     Dates: start: 20070827

REACTIONS (3)
  - DIABETES MELLITUS [None]
  - DIABETIC KETOACIDOSIS [None]
  - WEIGHT INCREASED [None]
